FAERS Safety Report 5546460-4 (Version None)
Quarter: 2007Q4

REPORT INFORMATION
  Report Type: 
  Country: None (occurrence: None)
  Receive Date: 20071211
  Receipt Date: 20070208
  Transmission Date: 20080405
  Serious: No
  Sender: FDA-Public Use
  Company Number: US-AMGEN-KDL210509

PATIENT
  Sex: Female

DRUGS (7)
  1. ENBREL [Suspect]
     Indication: RHEUMATOID ARTHRITIS
     Route: 058
     Dates: start: 20061101
  2. PLAQUENIL [Concomitant]
  3. NORCO [Concomitant]
  4. XANAX [Concomitant]
  5. FLEXERIL [Concomitant]
  6. VITAMIN CAP [Concomitant]
  7. MOTRIN [Concomitant]

REACTIONS (4)
  - ASTHENIA [None]
  - CHEST DISCOMFORT [None]
  - COUGH [None]
  - RHINORRHOEA [None]
